FAERS Safety Report 5725128-5 (Version None)
Quarter: 2008Q2

REPORT INFORMATION
  Report Type: 
  Country: None (occurrence: None)
  Receive Date: 20080429
  Receipt Date: 20080422
  Transmission Date: 20081010
  Serious: Yes (Life-Threatening, Hospitalization)
  Sender: FDA-Public Use
  Company Number: 2008SP001606

PATIENT
  Age: 46 Year
  Sex: Male
  Weight: 93.7 kg

DRUGS (6)
  1. TEMOZOLOMIDE [Suspect]
     Indication: COLORECTAL CANCER
     Dosage: 250 MG; QD; PO, 250 MG; QD; PO
     Route: 048
     Dates: start: 20071221, end: 20071228
  2. TEMOZOLOMIDE [Suspect]
     Indication: COLORECTAL CANCER
     Dosage: 250 MG; QD; PO, 250 MG; QD; PO
     Route: 048
     Dates: start: 20080104, end: 20080111
  3. GABAPENTIN [Concomitant]
  4. OLANZAPINE [Concomitant]
  5. VENLAFAXINE HCL [Concomitant]
  6. TRAMADOL HCL [Concomitant]

REACTIONS (6)
  - ASTHENIA [None]
  - DEHYDRATION [None]
  - DISEASE PROGRESSION [None]
  - DIZZINESS [None]
  - RENAL IMPAIRMENT [None]
  - VOMITING [None]
